FAERS Safety Report 7952230-X (Version None)
Quarter: 2011Q4

REPORT INFORMATION
  Report Type: 
  Country: None (occurrence: None)
  Receive Date: 20111201
  Receipt Date: 20111116
  Transmission Date: 20120403
  Serious: Yes (Other)
  Sender: FDA-Public Use
  Company Number: GB-ASTELLAS-2011EU006703

PATIENT
  Sex: Male
  Weight: 70 kg

DRUGS (3)
  1. VESICARE [Suspect]
     Indication: INCONTINENCE
     Dosage: 5 MG, UNKNOWN/D
     Route: 048
     Dates: start: 20090928
  2. FINASTERIDE [Concomitant]
     Indication: BENIGN PROSTATIC HYPERPLASIA
     Dosage: 5 MG, UNKNOWN/D
     Route: 048
     Dates: start: 20020131
  3. IRBESARTAN [Concomitant]
     Indication: HYPERTENSION
     Dosage: 15 MG, UNKNOWN/D
     Route: 048
     Dates: start: 20110610

REACTIONS (1)
  - BLOOD ALKALINE PHOSPHATASE INCREASED [None]
